FAERS Safety Report 5957572-5 (Version None)
Quarter: 2008Q4

REPORT INFORMATION
  Report Type: 
  Country: None (occurrence: None)
  Receive Date: 20081117
  Receipt Date: 20081117
  Transmission Date: 20090506
  Serious: Yes (Other)
  Sender: FDA-Public Use
  Company Number: None

PATIENT
  Age: 73 Year
  Sex: Female
  Weight: 61.2356 kg

DRUGS (1)
  1. LEVAQUIN [Suspect]
     Indication: CHOLECYSTECTOMY
     Dosage: 750 MG. 1 PER DAY 00045-1530-20
     Dates: start: 20081016, end: 20081025

REACTIONS (1)
  - PAIN IN EXTREMITY [None]
